FAERS Safety Report 8761785 (Version 2)
Quarter: 2012Q4

REPORT INFORMATION
  Report Type: Spontaneous
  Country: IT (occurrence: None)
  Receive Date: 20120823
  Receipt Date: 20120926
  Transmission Date: 20130627
  Serious: Yes (Hospitalization)
  Sender: FDA-Public Use
  Company Number: DKLU1083988

PATIENT
  Age: 67 Year
  Sex: Female

DRUGS (8)
  1. ONFI [Suspect]
     Indication: PRODUCT USED FOR UNKNOWN INDICATION
     Route: 048
     Dates: start: 20120716, end: 20120723
  2. GARDENALE [Suspect]
     Indication: EPILEPSY
     Route: 048
     Dates: start: 20120716, end: 20120723
  3. OXAZEPAM [Suspect]
     Indication: PRODUCT USED FOR UNKNOWN INDICATION
     Route: 048
     Dates: start: 20120716, end: 20120723
  4. SIMVASTATIN (SIMVASTATIN) [Concomitant]
  5. TRAVATAN (TRAVOPROST) [Concomitant]
  6. ANTRA (OMEPRAZOLE) [Concomitant]
  7. TRIATEC HCT (SALUTEC) [Concomitant]
  8. DINTOINA (PHENYTOIN SODIUM) [Concomitant]

REACTIONS (2)
  - Sopor [None]
  - Drug level increased [None]
